FAERS Safety Report 23648991 (Version 1)
Quarter: 2024Q1

REPORT INFORMATION
  Report Type: Spontaneous
  Country: JP (occurrence: None)
  Receive Date: 20240319
  Receipt Date: 20240319
  Transmission Date: 20240410
  Serious: Yes (Other)
  Sender: FDA-Public Use
  Company Number: 2024A063513

PATIENT
  Sex: Male

DRUGS (1)
  1. TAGRISSO [Suspect]
     Active Substance: OSIMERTINIB
     Indication: Non-small cell lung cancer
     Route: 048

REACTIONS (4)
  - Renal cancer [Unknown]
  - Pancreatic carcinoma [Unknown]
  - Metastases to lymph nodes [Unknown]
  - Back pain [Unknown]

NARRATIVE: CASE EVENT DATE: 20240101
